FAERS Safety Report 17302747 (Version 4)
Quarter: 2021Q1

REPORT INFORMATION
  Report Type: Spontaneous
  Country: DE (occurrence: DE)
  Receive Date: 20200122
  Receipt Date: 20210318
  Transmission Date: 20210419
  Serious: Yes (Other)
  Sender: FDA-Public Use
  Company Number: DE-MYLANLABS-2020M1006038

PATIENT
  Sex: Female
  Weight: 99 kg

DRUGS (15)
  1. TORASEMID AL [Concomitant]
     Active Substance: TORSEMIDE
     Dosage: 10 MILLIGRAM, QD (ONCE DAILY IN THE MORNING)
     Dates: start: 2017
  2. TORASEMID AL [Concomitant]
     Active Substance: TORSEMIDE
     Dosage: UNK
     Dates: start: 2018
  3. VALSARTAN DURA 160 MG FILMTABLETTEN [Suspect]
     Active Substance: VALSARTAN
     Indication: PRODUCT USED FOR UNKNOWN INDICATION
     Dosage: 80 MILLIGRAM, BID (2 X DAILY) (ONCE IN MORNING AND ONCE IN EVENING)
     Route: 048
     Dates: end: 2019
  4. VALSARTAN DURA 160 MG FILMTABLETTEN [Suspect]
     Active Substance: VALSARTAN
     Dosage: UNK
     Dates: start: 2018
  5. AMLODIPIN ACTAVIS                  /00972402/ [Concomitant]
     Active Substance: AMLODIPINE BESYLATE
     Dosage: 10 MILLIGRAM, QD (ONCE DAILY IN THE MORNING)
     Dates: start: 2017
  6. EBRANTIL                           /00631801/ [Concomitant]
     Active Substance: URAPIDIL
     Dosage: 60 MILLIGRAM, BID, TWICE DAILY (IN THE MORNING AND IN THE EVENING),
  7. DOXAGAMMA [Concomitant]
     Active Substance: DOXAZOSIN MESYLATE
     Dosage: UNK
     Dates: start: 2017
  8. SYMBICORT [Concomitant]
     Active Substance: BUDESONIDE\FORMOTEROL FUMARATE DIHYDRATE
     Dosage: UNK, 160/4.5UG120E
     Dates: start: 2018
  9. METFORMIN LICH [Concomitant]
     Dosage: 1000 MILLIGRAM, BID (TWICE DAILY (IN THE MORNING AND IN THE EVENING, EACH TIME ?)
     Dates: start: 2018
  10. VALSARTAN. [Suspect]
     Active Substance: VALSARTAN
     Indication: PRODUCT USED FOR UNKNOWN INDICATION
     Dosage: UNK
     Dates: start: 2017
  11. METOHEXAL                          /00376902/ [Concomitant]
     Active Substance: METOPROLOL SUCCINATE
     Dosage: 50 MILLIGRAM, BID (TWICE DAILY (IN THE MORNING AND IN THE EVENING), EACH TIME ?)
  12. DOXAGAMMA [Concomitant]
     Active Substance: DOXAZOSIN MESYLATE
     Dosage: UNK
     Dates: start: 2018
  13. AMLODIPIN HEXAL                    /00972401/ [Concomitant]
     Active Substance: AMLODIPINE BESYLATE
     Dosage: UNK
     Dates: start: 2018
  14. PREGABALIN. [Concomitant]
     Active Substance: PREGABALIN
     Dosage: 75 MILLIGRAM, BID (TWICE DAILY (IN THE MORNING AND IN THE EVENING))
  15. CANDESARTAN. [Concomitant]
     Active Substance: CANDESARTAN
     Dosage: 16 MILLIGRAM, BID (TWICE DAILY (IN THE MORNING AND IN THE EVENING)

REACTIONS (4)
  - Recalled product administered [Unknown]
  - Mental impairment [Unknown]
  - Quality of life decreased [Unknown]
  - Fear of disease [Unknown]
